FAERS Safety Report 26155487 (Version 1)
Quarter: 2025Q4

REPORT INFORMATION
  Report Type: Spontaneous
  Country: CN (occurrence: CN)
  Receive Date: 20251215
  Receipt Date: 20251215
  Transmission Date: 20260118
  Serious: No
  Sender: ALKEM
  Company Number: None

PATIENT
  Age: 53 Year
  Sex: Female

DRUGS (6)
  1. TACROLIMUS [Suspect]
     Active Substance: TACROLIMUS
     Indication: Glomerulonephritis membranous
     Dosage: UNK
     Route: 065
     Dates: start: 201905
  2. TACROLIMUS [Suspect]
     Active Substance: TACROLIMUS
     Indication: Renal amyloidosis
  3. PREDNISONE [Suspect]
     Active Substance: PREDNISONE
     Indication: Glomerulonephritis membranous
     Dosage: 30 MILLIGRAM, QD (EVERY 1 DAY)
     Route: 065
     Dates: start: 201905
  4. PREDNISONE [Suspect]
     Active Substance: PREDNISONE
     Indication: Renal amyloidosis
  5. LOSARTAN [Concomitant]
     Active Substance: LOSARTAN
     Indication: Glomerulonephritis membranous
     Dosage: UNK
     Route: 065
     Dates: start: 201905
  6. LOSARTAN [Concomitant]
     Active Substance: LOSARTAN
     Indication: Renal amyloidosis

REACTIONS (2)
  - Palpitations [Unknown]
  - Tremor [Unknown]

NARRATIVE: CASE EVENT DATE: 20190101
